FAERS Safety Report 4420519-7 (Version None)
Quarter: 2004Q3

REPORT INFORMATION
  Report Type: 
  Country: None (occurrence: None)
  Receive Date: 20040809
  Receipt Date: 20040322
  Transmission Date: 20050211
  Serious: No
  Sender: FDA-Public Use
  Company Number: US-GLAXOSMITHKLINE-A0503866A

PATIENT
  Age: 51 Year
  Sex: Female

DRUGS (4)
  1. PAXIL CR [Suspect]
     Indication: DEPRESSION
     Dosage: 25MG PER DAY
     Route: 048
     Dates: start: 20030101
  2. IBUPROFEN [Concomitant]
  3. VALTREX [Concomitant]
  4. AMBIEN [Concomitant]

REACTIONS (6)
  - DEPRESSION [None]
  - DRUG WITHDRAWAL SYNDROME [None]
  - INSOMNIA [None]
  - NASAL CONGESTION [None]
  - NERVOUSNESS [None]
  - SEXUAL DYSFUNCTION [None]
